FAERS Safety Report 7430306-3 (Version None)
Quarter: 2011Q2

REPORT INFORMATION
  Report Type: 
  Country: None (occurrence: None)
  Receive Date: 20110421
  Receipt Date: 20110418
  Transmission Date: 20111010
  Serious: Yes (Death, Other)
  Sender: FDA-Public Use
  Company Number: US-ELI_LILLY_AND_COMPANY-US201102004746

PATIENT
  Sex: Female
  Weight: 78.458 kg

DRUGS (9)
  1. GEMZAR [Suspect]
     Indication: BREAST CANCER METASTATIC
     Dosage: 950 MG, DAY1, 8 AND 15
     Route: 065
     Dates: start: 20100409, end: 20110118
  2. IBUPROFEN [Concomitant]
  3. IMODIUM [Concomitant]
  4. POTASSIUM [Concomitant]
  5. LOVENOX [Concomitant]
  6. HYDROCODONE BITARTRATE [Concomitant]
  7. LASIX [Concomitant]
  8. ZOMETA [Concomitant]
  9. CALCIUM [Concomitant]

REACTIONS (2)
  - NEOPLASM MALIGNANT [None]
  - ASCITES [None]
